FAERS Safety Report 4706958-5 (Version None)
Quarter: 2005Q2

REPORT INFORMATION
  Report Type: 
  Country: None (occurrence: None)
  Receive Date: 20050630
  Receipt Date: 20050620
  Transmission Date: 20051028
  Serious: Yes (Death)
  Sender: FDA-Public Use
  Company Number: 2005S1005163

PATIENT
  Age: 49 Year
  Sex: Female

DRUGS (3)
  1. CLOZAPINE [Suspect]
     Indication: SCHIZOPHRENIA
     Dosage: 100 MG; QAM; PO; 350 MG; HS; PO
     Route: 048
     Dates: end: 20050501
  2. CLOZAPINE [Suspect]
     Indication: SCHIZOPHRENIA
     Dosage: 100 MG; QAM; PO; 350 MG; HS; PO
     Route: 048
     Dates: end: 20050501
  3. VALPROATE SODIUM [Concomitant]

REACTIONS (1)
  - DEATH [None]
